FAERS Safety Report 10019728 (Version 3)
Quarter: 2014Q2

REPORT INFORMATION
  Report Type: Spontaneous
  Country: US (occurrence: US)
  Receive Date: 20140318
  Receipt Date: 20140618
  Transmission Date: 20141212
  Serious: No
  Sender: FDA-Public Use
  Company Number: US-GALDERMA-US14000235

PATIENT
  Age: 75 Year
  Sex: Female

DRUGS (9)
  1. MIRVASO (BRIMONIDINE) TOPICAL GEL, 0.33% [Suspect]
     Indication: ROSACEA
     Dosage: 0.33%
     Route: 061
     Dates: start: 20131121, end: 20140121
  2. LOTREL (AMLODIPINE AND BENAZEPRIL) [Concomitant]
     Indication: BLOOD PRESSURE
     Dosage: 5-20 MG
     Route: 048
     Dates: start: 2009
  3. SYNTHROID (LEVOTHYROXINE) [Concomitant]
     Indication: HYPOTHYROIDISM
     Dosage: 0.88 MG
     Route: 048
  4. VALTREX(VALACYCLOVIR HYDROCHLORIDE ) [Concomitant]
     Indication: ORAL HERPES
     Dosage: 500 MG
     Route: 048
     Dates: start: 2007
  5. PREMARIN (CONJUGATED ESTROGENS TABLETS, [Concomitant]
     Indication: MENOPAUSE
     Dosage: 0.45 MG
     Route: 048
     Dates: start: 1989
  6. OLAY REGENERIST [Concomitant]
     Indication: DRY SKIN PROPHYLAXIS
     Route: 061
  7. RETINOL PRODUCT 0.5% [Concomitant]
     Dosage: 0.%
     Route: 061
  8. AVENE CICALFATE SKIN CREAM [Concomitant]
     Indication: LASER THERAPY
     Route: 061
  9. ORACEA (DOXYCYCLINE, USP) CAPSULES 40 MG [Concomitant]
     Dosage: 40 MG
     Route: 048
     Dates: start: 20140121

REACTIONS (13)
  - Condition aggravated [Recovered/Resolved]
  - Nasal oedema [Recovered/Resolved]
  - Feeling hot [Recovered/Resolved]
  - Rash [Recovered/Resolved]
  - Nasal discomfort [Recovered/Resolved]
  - Skin irritation [Recovered/Resolved]
  - Oedema [Recovered/Resolved]
  - Dyspnoea [Recovered/Resolved]
  - Rash pustular [Recovered/Resolved]
  - Erythema [Recovered/Resolved]
  - Paraesthesia [Recovered/Resolved]
  - Off label use [Recovered/Resolved]
  - Nasal congestion [Recovered/Resolved]
